FAERS Safety Report 8990629 (Version 1)
Quarter: 2012Q4

REPORT INFORMATION
  Report Type: 
  Country: LB (occurrence: LB)
  Receive Date: 20121228
  Receipt Date: 20121228
  Transmission Date: 20130627
  Serious: Yes (Disabling)
  Sender: FDA-Public Use
  Company Number: LB-SANOFI-AVENTIS-2012SA094440

PATIENT
  Age: 70 Year
  Sex: Male

DRUGS (4)
  1. LANTUS SOLOSTAR [Suspect]
     Indication: DIABETES
     Dosage: Dose:10 unit(s)
     Route: 058
  2. SOLOSTAR [Suspect]
     Indication: DEVICE THERAPY
  3. DIOVANE [Concomitant]
     Indication: HYPERTENSION
     Route: 048
  4. GLUCOPHAGE [Concomitant]
     Indication: DIABETES
     Route: 048

REACTIONS (1)
  - Thrombophlebitis [Recovering/Resolving]
